FAERS Safety Report 24179690 (Version 1)
Quarter: 2024Q3

REPORT INFORMATION
  Report Type: Spontaneous
  Country: US (occurrence: US)
  Receive Date: 20240806
  Receipt Date: 20240806
  Transmission Date: 20241016
  Serious: No
  Sender: GALDERMA
  Company Number: US-GALDERMA-US2024010235

PATIENT

DRUGS (2)
  1. DIFFERIN GEL [Suspect]
     Active Substance: ADAPALENE
     Indication: Melanocytic naevus
     Dosage: 1 DOSAGE FORM, QD, ONCE DAILY
     Route: 061
     Dates: start: 2024
  2. DIFFERIN GEL [Suspect]
     Active Substance: ADAPALENE
     Indication: Acrochordon

REACTIONS (2)
  - Product use in unapproved indication [Recovered/Resolved]
  - Drug effective for unapproved indication [Recovered/Resolved]

NARRATIVE: CASE EVENT DATE: 20240101
